FAERS Safety Report 18288591 (Version 4)
Quarter: 2025Q3

REPORT INFORMATION
  Report Type: Spontaneous
  Country: US (occurrence: US)
  Receive Date: 20200921
  Receipt Date: 20250916
  Transmission Date: 20251020
  Serious: No
  Sender: MERCK SHARP & DOHME LLC
  Company Number: US-009507513-2009USA006483

PATIENT
  Age: 78 Year
  Sex: Female
  Weight: 70.295 kg

DRUGS (17)
  1. JANUVIA [Suspect]
     Active Substance: SITAGLIPTIN PHOSPHATE
     Indication: Diabetes mellitus
     Dosage: DOSE DESCRIPTION : 100MG/ONCE DAILY?DAILY DOSE : 100 MILLIGRAM?REGIMEN DOSE : 800  MILLIGRAM
     Route: 048
     Dates: start: 20200905, end: 20200912
  2. GLIPIZIDE [Concomitant]
     Active Substance: GLIPIZIDE
     Dosage: DOSE DESCRIPTION : 10 MG, BID?DAILY DOSE : 20 MILLIGRAM
     Route: 048
  3. ISOSORBIDE MONONITRATE [Concomitant]
     Active Substance: ISOSORBIDE MONONITRATE
  4. CARVEDILOL [Concomitant]
     Active Substance: CARVEDILOL
  5. CHLORTHALIDONE [Concomitant]
     Active Substance: CHLORTHALIDONE
  6. PRAVASTATIN [Concomitant]
     Active Substance: PRAVASTATIN
  7. SYNTHROID [Concomitant]
     Active Substance: LEVOTHYROXINE SODIUM
     Route: 048
  8. ERGOCALCIFEROL [Concomitant]
     Active Substance: ERGOCALCIFEROL
  9. LANTUS [Concomitant]
     Active Substance: INSULIN GLARGINE
     Dosage: DOSE DESCRIPTION : 14 UNITS, BID
     Route: 058
  10. IRON [Concomitant]
     Active Substance: IRON
  11. ASPIRIN [Concomitant]
     Active Substance: ASPIRIN
  12. VITAMINS NOS [Concomitant]
     Active Substance: VITAMINS
  13. VITAMIN B [Concomitant]
     Active Substance: VITAMIN B
  14. ASCORBIC ACID [Concomitant]
     Active Substance: ASCORBIC ACID
  15. UBIDECARENONE [Concomitant]
     Active Substance: UBIDECARENONE
  16. CALCIUM [Concomitant]
     Active Substance: CALCIUM
  17. FISH OIL [Concomitant]
     Active Substance: FISH OIL

REACTIONS (6)
  - Fluid retention [Not Recovered/Not Resolved]
  - Arthralgia [Recovering/Resolving]
  - Gait disturbance [Not Recovered/Not Resolved]
  - Peripheral swelling [Not Recovered/Not Resolved]
  - Arthralgia [Recovering/Resolving]
  - Pain in extremity [Recovering/Resolving]

NARRATIVE: CASE EVENT DATE: 20200908
